FAERS Safety Report 18785721 (Version 1)
Quarter: 2021Q1

REPORT INFORMATION
  Report Type: Spontaneous
  Country: US (occurrence: US)
  Receive Date: 20210125
  Receipt Date: 20210125
  Transmission Date: 20210419
  Serious: Yes (Other)
  Sender: FDA-Public Use
  Company Number: US-SK LIFE SCIENCE, INC-SKPVG-2021-000082

PATIENT

DRUGS (1)
  1. XCOPRI [Suspect]
     Active Substance: CENOBAMATE
     Indication: SEIZURE
     Dosage: 50 MILLIGRAM
     Route: 048
     Dates: start: 20201202, end: 20201207

REACTIONS (4)
  - Urinary tract infection [Unknown]
  - Gait disturbance [Unknown]
  - SARS-CoV-2 test positive [Unknown]
  - Loss of consciousness [Unknown]

NARRATIVE: CASE EVENT DATE: 202012
